FAERS Safety Report 8367759-2 (Version None)
Quarter: 2012Q2

REPORT INFORMATION
  Report Type: 
  Country: None (occurrence: None)
  Receive Date: 20120517
  Receipt Date: 20120510
  Transmission Date: 20120825
  Serious: Yes (Hospitalization)
  Sender: FDA-Public Use
  Company Number: DE-GLAXOSMITHKLINE-D0075568A

PATIENT
  Age: 30 Month
  Sex: Male
  Weight: 15 kg

DRUGS (1)
  1. NARATRIPTAN [Suspect]
     Dosage: 2.5MG SINGLE DOSE
     Route: 048
     Dates: start: 20120510, end: 20120510

REACTIONS (2)
  - ACCIDENTAL DRUG INTAKE BY CHILD [None]
  - NO ADVERSE EVENT [None]
